FAERS Safety Report 10307505 (Version 1)
Quarter: 2014Q3

REPORT INFORMATION
  Report Type: Spontaneous
  Country: US (occurrence: None)
  Receive Date: 20140714
  Receipt Date: 20140714
  Transmission Date: 20150326
  Serious: Yes (Life-Threatening, Disabling)
  Sender: FDA-Public Use
  Company Number: None

PATIENT
  Age: 54 Year
  Sex: Male
  Weight: 74.84 kg

DRUGS (1)
  1. LIPITOR [Suspect]
     Active Substance: ATORVASTATIN CALCIUM
     Indication: MYOCARDIAL INFARCTION
     Dosage: 1 PILL ONCE DAILY
     Dates: start: 20070101, end: 20120131

REACTIONS (12)
  - Cataract [None]
  - Blood creatine phosphokinase increased [None]
  - Abasia [None]
  - Hepatic enzyme increased [None]
  - Muscle disorder [None]
  - Erectile dysfunction [None]
  - Blood testosterone decreased [None]
  - Grip strength decreased [None]
  - Asthenia [None]
  - Nerve injury [None]
  - Transient global amnesia [None]
  - Balance disorder [None]
